FAERS Safety Report 4540535-4 (Version None)
Quarter: 2004Q4

REPORT INFORMATION
  Report Type: 
  Country: None (occurrence: None)
  Receive Date: 20041228
  Receipt Date: 20041228
  Transmission Date: 20050328
  Serious: Yes (Life-Threatening, Hospitalization)
  Sender: FDA-Public Use
  Company Number: None

PATIENT
  Age: 38 Year
  Sex: Female
  Weight: 63.6 kg

DRUGS (9)
  1. RITUXIMAB  375 MG/M2  GENENTECH [Suspect]
     Indication: GRAFT VERSUS HOST DISEASE
     Dosage: 375 MG/M1  1/WEEK WEEKLY INTRAVENOUS
     Route: 042
     Dates: start: 20040325, end: 20040415
  2. RITUXIMAB  375 MG/M2  GENENTECH [Suspect]
     Indication: GRAFT VERSUS HOST DISEASE
     Dosage: 375 MG/M1  1/WEEK WEEKLY INTRAVENOUS
     Route: 042
     Dates: start: 20040610, end: 20040701
  3. ADEFOVIR [Concomitant]
  4. BACTRIM [Concomitant]
  5. FAMVIR [Concomitant]
  6. FOLIC ACID [Concomitant]
  7. LAMIVUDINE [Concomitant]
  8. OXYCODONE HCL [Concomitant]
  9. OMEPRAZOLE [Concomitant]

REACTIONS (5)
  - BLOOD PRESSURE DECREASED [None]
  - JOINT ABSCESS [None]
  - JOINT EFFUSION [None]
  - STREPTOCOCCAL INFECTION [None]
  - TACHYCARDIA [None]
